FAERS Safety Report 24052102 (Version 2)
Quarter: 2024Q3

REPORT INFORMATION
  Report Type: Spontaneous
  Country: US (occurrence: US)
  Receive Date: 20240704
  Receipt Date: 20240805
  Transmission Date: 20241017
  Serious: No
  Sender: AMGEN
  Company Number: US-AMGEN-USASP2024129086

PATIENT
  Sex: Female

DRUGS (8)
  1. RAVICTI [Suspect]
     Active Substance: GLYCEROL PHENYLBUTYRATE
     Indication: Ornithine transcarbamoylase deficiency
     Dosage: 1 MILLILITER, Q8H
     Route: 048
  2. RAVICTI [Suspect]
     Active Substance: GLYCEROL PHENYLBUTYRATE
     Dosage: 1.2 MILLILITER (1.32 G), TID
     Route: 048
  3. FAMOTIDINE [Concomitant]
     Active Substance: FAMOTIDINE
     Dosage: 20 MILLIGRAM
  4. PYRIDOXINE [Concomitant]
     Active Substance: PYRIDOXINE
     Dosage: 50 MILLIGRAM
  5. DUOCAL [Concomitant]
     Dosage: UNK
  6. CITRULLINE [Concomitant]
     Active Substance: CITRULLINE
     Dosage: UNK, 1000 1 G/4 G POWD PACK
  7. VITAMINS [Concomitant]
     Active Substance: VITAMINS
     Dosage: UNK
  8. COPPER [Concomitant]
     Active Substance: COPPER
     Dosage: 2 MILLIGRAM

REACTIONS (2)
  - Decreased appetite [Unknown]
  - Ill-defined disorder [Unknown]
